FAERS Safety Report 5677216-X (Version None)
Quarter: 2008Q1

REPORT INFORMATION
  Report Type: 
  Country: None (occurrence: None)
  Receive Date: 20080324
  Receipt Date: 20080320
  Transmission Date: 20080703
  Serious: Yes (Death)
  Sender: FDA-Public Use
  Company Number: US-GILEAD-2008-0015824

PATIENT

DRUGS (6)
  1. LETAIRIS [Suspect]
     Indication: PULMONARY HYPERTENSION
     Route: 048
     Dates: start: 20071031
  2. DIGOXIN [Concomitant]
  3. CYMBALTA [Concomitant]
  4. PREVACID [Concomitant]
  5. POTASSIUM CHLORIDE [Concomitant]
  6. MAGNESIUM OXIDE [Concomitant]

REACTIONS (1)
  - DEATH [None]
